FAERS Safety Report 9722429 (Version 2)
Quarter: 2013Q4

REPORT INFORMATION
  Report Type: Report from Study
  Country: US (occurrence: US)
  Receive Date: 20131202
  Receipt Date: 20131217
  Transmission Date: 20140711
  Serious: Yes (Hospitalization)
  Sender: FDA-Public Use
  Company Number: US-US-EMD SERONO, INC.-7252329

PATIENT
  Age: 22 Year
  Sex: Male

DRUGS (1)
  1. REBIF [Suspect]
     Indication: PRODUCT USED FOR UNKNOWN INDICATION
     Dates: start: 20130401

REACTIONS (6)
  - Dehydration [Unknown]
  - Urinary incontinence [Unknown]
  - Faecal incontinence [Unknown]
  - Body temperature increased [Unknown]
  - Chills [Unknown]
  - Drug dose omission [Unknown]
